FAERS Safety Report 9444008 (Version 2)
Quarter: 2013Q3

REPORT INFORMATION
  Report Type: Spontaneous
  Country: FR (occurrence: FR)
  Receive Date: 20130807
  Receipt Date: 20130905
  Transmission Date: 20140515
  Serious: Yes (Hospitalization)
  Sender: FDA-Public Use
  Company Number: FR-JNJFOC-20130717792

PATIENT
  Age: 77 Year
  Sex: Female

DRUGS (9)
  1. PARACETAMOL [Suspect]
     Route: 048
  2. PARACETAMOL [Suspect]
     Indication: PAIN
     Route: 048
     Dates: start: 20130618
  3. OMEPRAZOLE [Suspect]
     Indication: GASTROINTESTINAL DISORDER THERAPY
     Route: 048
     Dates: start: 20130618
  4. OMEPRAZOLE [Suspect]
     Indication: GASTROINTESTINAL DISORDER THERAPY
     Route: 048
  5. OMEPRAZOLE [Suspect]
     Indication: GASTRIC DISORDER
     Route: 048
  6. OMEPRAZOLE [Suspect]
     Indication: GASTRIC DISORDER
     Route: 048
     Dates: start: 20130618
  7. BI-PROFENID [Suspect]
     Indication: PAIN
     Route: 048
     Dates: start: 20130618, end: 20130621
  8. ROPIVACAINE [Suspect]
     Indication: PAIN
     Route: 050
     Dates: start: 20130618, end: 20130622
  9. XARELTO [Concomitant]
     Indication: THROMBOSIS PROPHYLAXIS
     Route: 048
     Dates: start: 20130618, end: 20130622

REACTIONS (2)
  - Nausea [Recovered/Resolved]
  - Vomiting [Recovered/Resolved]
